FAERS Safety Report 4269618-3 (Version None)
Quarter: 2004Q1

REPORT INFORMATION
  Report Type: 
  Country: None (occurrence: None)
  Receive Date: 20040112
  Receipt Date: 20040102
  Transmission Date: 20041129
  Serious: Yes (Other)
  Sender: FDA-Public Use
  Company Number: DE-JNJFOC-20031006119

PATIENT
  Age: 63 Year
  Sex: Male

DRUGS (8)
  1. REMINYL [Suspect]
     Indication: DEMENTIA
     Dosage: 12 MG, 2 IN 1 DAY, ORAL
     Route: 048
  2. PARKINSAN (BUDIPINE) [Concomitant]
  3. MADOPAR (MADOPAR) [Concomitant]
  4. PLAVIX (CLOPIDOGREL SULFATE) FILM COATED TABLET [Concomitant]
  5. SIFROL (PRAMIPEXOLE DIHYDROCHLORIDE) TABLETS [Concomitant]
  6. MOTILIUM (DOMPERIDONE) TABLETS [Concomitant]
  7. NOCTAMID (LORMETAZEPAM) TABLETS [Concomitant]
  8. STANGYL (TRIMIPRAMINE MALEATE) TABLETS [Concomitant]

REACTIONS (3)
  - ALANINE AMINOTRANSFERASE INCREASED [None]
  - BLOOD CREATINE PHOSPHOKINASE INCREASED [None]
  - TREMOR [None]
